FAERS Safety Report 7357118-3 (Version None)
Quarter: 2011Q1

REPORT INFORMATION
  Report Type: 
  Country: None (occurrence: None)
  Receive Date: 20110308
  Receipt Date: 20110224
  Transmission Date: 20110831
  Serious: Yes (Hospitalization)
  Sender: FDA-Public Use
  Company Number: 2009001644

PATIENT
  Age: 62 Year
  Sex: Female

DRUGS (5)
  1. ERLOTINIB (ERLOTINIB) (TABLET) (ERLOTINIB) [Suspect]
     Indication: HEAD AND NECK CANCER
     Dosage: 150 MG, QD, ORAL
     Route: 048
     Dates: start: 20090325, end: 20090519
  2. CISPLATIN [Suspect]
     Indication: HEAD AND NECK CANCER
     Dosage: 471 MG, 1 X PER 1 WEEK, INTRAVENOUS
     Route: 042
     Dates: start: 20090325, end: 20090519
  3. PENTACOL [Concomitant]
  4. GELCLAIR [Concomitant]
  5. RADIATION THERAPY [Concomitant]

REACTIONS (1)
  - MUCOSAL INFLAMMATION [None]
